FAERS Safety Report 18404935 (Version 1)
Quarter: 2020Q4

REPORT INFORMATION
  Report Type: Spontaneous
  Country: US (occurrence: US)
  Receive Date: 20201020
  Receipt Date: 20201020
  Transmission Date: 20210114
  Serious: No
  Sender: FDA-Public Use
  Company Number: None

PATIENT
  Age: 48 Year
  Sex: Female
  Weight: 92.53 kg

DRUGS (3)
  1. COSENTYX [Suspect]
     Active Substance: SECUKINUMAB
     Indication: PSORIATIC ARTHROPATHY
  2. COSENTYX [Suspect]
     Active Substance: SECUKINUMAB
     Indication: PSORIASIS
     Dosage: ?          OTHER DOSE:150MG (1 PEN);?FREQUENCY: AT DAY 28 (DOSE 5), THEN EVERY 4 WEEKS AS DIRECTED
     Route: 058
     Dates: start: 202007
  3. COSENTYX [Suspect]
     Active Substance: SECUKINUMAB
     Indication: PSORIATIC ARTHROPATHY
     Dosage: ?          OTHER DOSE:150MG (1 PEN);?FREQUENCY: AT DAY 28 (DOSE 5), THEN EVERY 4 WEEKS AS DIRECTED
     Route: 058
     Dates: start: 202007

REACTIONS (1)
  - Hospitalisation [None]
